FAERS Safety Report 18886507 (Version 1)
Quarter: 2021Q1

REPORT INFORMATION
  Report Type: Spontaneous
  Country: JP (occurrence: JP)
  Receive Date: 20210212
  Receipt Date: 20210212
  Transmission Date: 20210420
  Serious: Yes (Other)
  Sender: FDA-Public Use
  Company Number: JP-PFIZER INC-2021122048

PATIENT
  Age: 77 Year
  Sex: Male

DRUGS (1)
  1. PACLITAXEL. [Suspect]
     Active Substance: PACLITAXEL
     Indication: GASTROOESOPHAGEAL CANCER
     Dosage: 156 UNK, WEEKLY (MIXED IN 50ML OF NSS)
     Route: 042
     Dates: start: 2019

REACTIONS (3)
  - Infusion site thrombosis [Unknown]
  - Infusion site induration [Unknown]
  - Infusion site oedema [Unknown]

NARRATIVE: CASE EVENT DATE: 2019
